FAERS Safety Report 4640024-2 (Version None)
Quarter: 2005Q2

REPORT INFORMATION
  Report Type: 
  Country: None (occurrence: None)
  Receive Date: 20050415
  Receipt Date: 20050415
  Transmission Date: 20051028
  Serious: No
  Sender: FDA-Public Use
  Company Number: None

PATIENT
  Sex: Female
  Weight: 74.3899 kg

DRUGS (2)
  1. MITOMYCIN-C BULK POWDER [Suspect]
     Indication: ANAL CANCER
     Dosage: 18 MG Q 21 DAYS, IV
     Route: 042
     Dates: start: 20050325
  2. FLUOROURACIL [Suspect]
     Indication: ANAL CANCER
     Dosage: 1800 MG D1-4 Q21 DAYS, IV
     Route: 042
     Dates: start: 20050325

REACTIONS (3)
  - DIARRHOEA [None]
  - NEUTROPENIA [None]
  - SMALL INTESTINAL OBSTRUCTION [None]
